FAERS Safety Report 22295101 (Version 1)
Quarter: 2023Q2

REPORT INFORMATION
  Report Type: Spontaneous
  Country: FR (occurrence: FR)
  Receive Date: 20230508
  Receipt Date: 20230508
  Transmission Date: 20230722
  Serious: Yes (Hospitalization)
  Sender: FDA-Public Use
  Company Number: None

PATIENT
  Age: 53 Year
  Sex: Male
  Weight: 92 kg

DRUGS (4)
  1. AMOXICILLIN [Suspect]
     Active Substance: AMOXICILLIN
     Indication: Prophylaxis
     Route: 065
     Dates: start: 20230317, end: 20230330
  2. DASATINIB [Interacting]
     Active Substance: DASATINIB
     Indication: Plasma cell myeloma
     Route: 065
     Dates: start: 20230317, end: 20230330
  3. POSACONAZOLE [Interacting]
     Active Substance: POSACONAZOLE
     Indication: Prophylaxis
     Route: 065
     Dates: start: 20230317, end: 20230330
  4. OMEPRAZOLE [Suspect]
     Active Substance: OMEPRAZOLE
     Indication: Product used for unknown indication
     Route: 065
     Dates: start: 20230317, end: 20230331

REACTIONS (4)
  - Face oedema [Not Recovered/Not Resolved]
  - Rash [Not Recovered/Not Resolved]
  - Palmar-plantar erythrodysaesthesia syndrome [Not Recovered/Not Resolved]
  - Drug interaction [Unknown]

NARRATIVE: CASE EVENT DATE: 20230323
